FAERS Safety Report 23003901 (Version 2)
Quarter: 2023Q4

REPORT INFORMATION
  Report Type: Spontaneous
  Country: DE (occurrence: DE)
  Receive Date: 20230928
  Receipt Date: 20231103
  Transmission Date: 20240110
  Serious: Yes (Other)
  Sender: FDA-Public Use
  Company Number: DE-AMGEN-DEUSP2023168794

PATIENT
  Age: 62 Year
  Sex: Male

DRUGS (1)
  1. NPLATE [Suspect]
     Active Substance: ROMIPLOSTIM
     Indication: Immune thrombocytopenia
     Dosage: 5-7 MICROGRAM/KILOGRAM
     Route: 065
     Dates: start: 202111

REACTIONS (2)
  - Deep vein thrombosis [Recovered/Resolved]
  - Platelet disorder [Not Recovered/Not Resolved]
